FAERS Safety Report 17108962 (Version 2)
Quarter: 2019Q4

REPORT INFORMATION
  Report Type: Report from Study
  Country: None (occurrence: IT)
  Receive Date: 20191204
  Receipt Date: 20191219
  Transmission Date: 20200122
  Serious: Yes (Hospitalization, Other)
  Sender: FDA-Public Use
  Company Number: IT-ABBVIE-19K-083-3177965-00

PATIENT
  Age: 80 Year
  Sex: Male

DRUGS (1)
  1. DUODOPA [Suspect]
     Active Substance: CARBIDOPA\LEVODOPA
     Indication: PARKINSON^S DISEASE
     Dosage: MD 5+3?CR 4.3?ED 4.5
     Route: 050
     Dates: start: 20120319

REACTIONS (3)
  - Melaena [Recovered/Resolved]
  - Weight decreased [Unknown]
  - Anaemia [Unknown]

NARRATIVE: CASE EVENT DATE: 201910
